FAERS Safety Report 24797362 (Version 1)
Quarter: 2025Q1

REPORT INFORMATION
  Report Type: Spontaneous
  Country: CA (occurrence: CA)
  Receive Date: 20250102
  Receipt Date: 20250102
  Transmission Date: 20250408
  Serious: Yes (Other)
  Sender: TEVA
  Company Number: CA-TEVA-VS-3282035

PATIENT
  Age: 71 Year
  Sex: Male

DRUGS (1)
  1. ZOLEDRONIC ACID [Suspect]
     Active Substance: ZOLEDRONIC ACID
     Indication: Osteitis deformans
     Route: 041

REACTIONS (15)
  - Cardiac flutter [Recovering/Resolving]
  - Neck pain [Recovering/Resolving]
  - Nausea [Recovering/Resolving]
  - Bone pain [Recovering/Resolving]
  - Cough [Recovering/Resolving]
  - Asthenia [Recovering/Resolving]
  - Influenza like illness [Recovering/Resolving]
  - Arrhythmia [Recovering/Resolving]
  - Illness [Recovering/Resolving]
  - Myalgia [Recovering/Resolving]
  - Arthralgia [Recovering/Resolving]
  - Pain [Recovering/Resolving]
  - Fatigue [Recovering/Resolving]
  - Headache [Recovering/Resolving]
  - Chills [Recovering/Resolving]
